FAERS Safety Report 9796033 (Version 1)
Quarter: 2014Q1

REPORT INFORMATION
  Report Type: Spontaneous
  Country: US (occurrence: US)
  Receive Date: 20140103
  Receipt Date: 20140103
  Transmission Date: 20141002
  Serious: Yes (Other)
  Sender: FDA-Public Use
  Company Number: US-BAYER-2014-000804

PATIENT
  Age: 41 Year
  Sex: Female
  Weight: 108.39 kg

DRUGS (21)
  1. YAZ [Suspect]
     Indication: MENSTRUAL CYCLE MANAGEMENT
  2. GIANVI [Suspect]
  3. YASMIN [Suspect]
  4. OMEPRAZOLE [Concomitant]
     Dosage: 20 MG, DAILY
  5. MVI [Concomitant]
  6. NUCYNTA [Concomitant]
     Dosage: 500 MG, EVERY 4-6 HOURS
  7. MARCAINE [Concomitant]
     Dosage: 1%
  8. ANCEF [Concomitant]
     Dosage: 1GM/50ML
  9. EDROPHONIUM CHLORIDE [Concomitant]
  10. ATROPINE SULFATE [Concomitant]
  11. FENTANYL [Concomitant]
  12. VICODIN [Concomitant]
  13. LIDOCAINE [Concomitant]
     Dosage: 1%
     Route: 023
  14. MIDAZOLAM [Concomitant]
  15. MORPHINE [Concomitant]
  16. ZOFRAN [Concomitant]
  17. PROPOFOL [Concomitant]
  18. ROCURONIUM [Concomitant]
  19. SUCCINYL CHOLINE [Concomitant]
  20. PERCOCET [Concomitant]
  21. AZITHROMYCIN [Concomitant]
     Dosage: 500 MG THEN 250 DAILY FOR SUBSEQUENT DAYS

REACTIONS (1)
  - Deep vein thrombosis [None]
